FAERS Safety Report 8974184 (Version 1)
Quarter: 2012Q4

REPORT INFORMATION
  Report Type: Spontaneous
  Country: ES (occurrence: None)
  Receive Date: 20121211
  Receipt Date: 20121211
  Transmission Date: 20130627
  Serious: Yes (Hospitalization)
  Sender: FDA-Public Use
  Company Number: 2012SUN00314

PATIENT
  Age: 58 Year
  Sex: Male

DRUGS (4)
  1. GEMCITABINE [Suspect]
     Indication: BONE METASTASES
     Route: 042
  2. CISPLATIN [Suspect]
     Indication: LUNG NEOPLASM MALIGNANT
  3. HEPARIN (HEPARIN) [Concomitant]
  4. BISPHOSPHONATES (BISPHOSPHONATES) [Concomitant]

REACTIONS (1)
  - Cerebral infarction [None]
